FAERS Safety Report 25312716 (Version 1)
Quarter: 2025Q2

REPORT INFORMATION
  Report Type: Spontaneous
  Country: GB (occurrence: GB)
  Receive Date: 20250514
  Receipt Date: 20250514
  Transmission Date: 20250716
  Serious: Yes (Other)
  Sender: RANBAXY
  Company Number: GB-SUN PHARMACEUTICAL INDUSTRIES LTD-2025RR-506789

PATIENT
  Age: 19 Year
  Sex: Male
  Weight: 80 kg

DRUGS (6)
  1. ISOTRETINOIN [Suspect]
     Active Substance: ISOTRETINOIN
     Indication: Ill-defined disorder
     Dosage: 60MG ONCE DAILY (3X20MG CAPSULES)
     Route: 065
     Dates: start: 20250115, end: 20250430
  2. ACYCLOVIR [Concomitant]
     Active Substance: ACYCLOVIR
     Indication: Ill-defined disorder
     Route: 065
     Dates: start: 20250422, end: 20250427
  3. FLUCLOXACILLIN [Concomitant]
     Active Substance: FLUCLOXACILLIN
     Indication: Ill-defined disorder
     Route: 065
     Dates: start: 20250422, end: 20250427
  4. ADAPALENE [Concomitant]
     Active Substance: ADAPALENE
     Indication: Ill-defined disorder
     Route: 065
     Dates: start: 20250430
  5. DERMOL [Concomitant]
     Active Substance: BENZALKONIUM CHLORIDE\CHLORHEXIDINE HYDROCHLORIDE\ISOPROPYL MYRISTATE\PARAFFIN
     Indication: Ill-defined disorder
     Route: 065
     Dates: start: 20250430
  6. DOXYCYCLINE [Concomitant]
     Active Substance: DOXYCYCLINE
     Indication: Ill-defined disorder
     Route: 065
     Dates: start: 20231110

REACTIONS (3)
  - Emotional distress [Recovering/Resolving]
  - Mood altered [Unknown]
  - Intrusive thoughts [Unknown]

NARRATIVE: CASE EVENT DATE: 20250115
